FAERS Safety Report 9026515 (Version 1)
Quarter: 2012Q4

REPORT INFORMATION
  Report Type: Spontaneous
  Country: FR (occurrence: None)
  Receive Date: 20121211
  Receipt Date: 20121211
  Transmission Date: 20130627
  Serious: Yes (Other)
  Sender: FDA-Public Use
  Company Number: DSM-2012-01308

PATIENT
  Sex: Female

DRUGS (1)
  1. OLMESARTAN MEDOXOMIL [Suspect]
     Indication: HYPERTENSION
     Route: 048

REACTIONS (3)
  - Oligohydramnios [None]
  - Abortion induced [None]
  - Exposure during pregnancy [None]
